FAERS Safety Report 9134867 (Version 1)
Quarter: 2013Q1

REPORT INFORMATION
  Report Type: Spontaneous
  Country: US (occurrence: US)
  Receive Date: 20130304
  Receipt Date: 20130304
  Transmission Date: 20140127
  Serious: No
  Sender: FDA-Public Use
  Company Number: US-ENDO PHARMACEUTICALS INC.-PERC20110025

PATIENT
  Sex: Female

DRUGS (1)
  1. PERCOCET [Suspect]
     Indication: DRUG ABUSE
     Dosage: 10/650 MG
     Route: 048

REACTIONS (3)
  - Drug diversion [None]
  - Drug abuse [None]
  - Product counterfeit [None]
